FAERS Safety Report 8103020-9 (Version None)
Quarter: 2012Q1

REPORT INFORMATION
  Report Type: 
  Country: None (occurrence: None)
  Receive Date: 20120201
  Receipt Date: 20120201
  Transmission Date: 20120608
  Serious: Yes (Hospitalization)
  Sender: FDA-Public Use
  Company Number: None

PATIENT
  Sex: Female
  Weight: 82.1 kg

DRUGS (14)
  1. VALACYCLOVIR [Concomitant]
     Route: 048
  2. DOXORUBICIN HCL [Concomitant]
     Indication: DIFFUSE LARGE B-CELL LYMPHOMA
     Dosage: 19 MG
     Route: 042
     Dates: start: 20120119, end: 20120122
  3. FLUCONAZOLE [Concomitant]
     Route: 048
  4. LEVOFLOXACIN [Concomitant]
     Route: 048
  5. MAG/AL-OH + SIMETHICONE SUSP [Concomitant]
     Route: 048
  6. OMEPRAZOLE [Concomitant]
     Route: 048
  7. CYCLOPHOSPHAMIDE [Suspect]
     Indication: DIFFUSE LARGE B-CELL LYMPHOMA
     Dosage: 1420 MG
     Route: 042
     Dates: start: 20120123, end: 20120123
  8. ONDANSETRON [Concomitant]
     Route: 048
  9. LOPERAMIDE HCL [Concomitant]
     Route: 048
  10. METOPROLOL TARTRATE [Concomitant]
     Route: 048
  11. TRIMETHOPRIM + SULFAMETHOXAZOLE [Concomitant]
     Route: 048
  12. ZINC SULFATE  FILGRASTIM [Concomitant]
     Route: 058
  13. ZOLPIDEM [Concomitant]
     Route: 048
  14. MULTI-VITAMIN [Concomitant]
     Route: 048

REACTIONS (5)
  - VOMITING [None]
  - NEUTROPENIA [None]
  - NAUSEA [None]
  - DIARRHOEA [None]
  - ABDOMINAL PAIN [None]
